FAERS Safety Report 5891391-3 (Version None)
Quarter: 2008Q3

REPORT INFORMATION
  Report Type: 
  Country: None (occurrence: None)
  Receive Date: 20080918
  Receipt Date: 20080918
  Transmission Date: 20090109
  Serious: No
  Sender: FDA-Public Use
  Company Number: None

PATIENT
  Age: 75 Year
  Sex: Male
  Weight: 90.7194 kg

DRUGS (1)
  1. DEFINITY [Suspect]
     Indication: SCAN WITH CONTRAST
     Dosage: 1.5 CC
     Dates: start: 20080915

REACTIONS (1)
  - BACK PAIN [None]
